FAERS Safety Report 15060431 (Version 1)
Quarter: 2018Q2

REPORT INFORMATION
  Report Type: Spontaneous
  Country: NL (occurrence: NL)
  Receive Date: 20180625
  Receipt Date: 20180625
  Transmission Date: 20180711
  Serious: Yes (Other)
  Sender: FDA-Public Use
  Company Number: PHHY2018NL029532

PATIENT
  Age: 31 Year
  Sex: Male
  Weight: 89 kg

DRUGS (3)
  1. MESALAZINE [Suspect]
     Active Substance: MESALAMINE
     Indication: PRODUCT USED FOR UNKNOWN INDICATION
     Route: 065
  2. ALLOPURINOL. [Suspect]
     Active Substance: ALLOPURINOL
     Indication: COLITIS ULCERATIVE
     Dosage: UNK
     Route: 065
  3. MERCAPTOPURINE. [Suspect]
     Active Substance: MERCAPTOPURINE
     Indication: COLITIS ULCERATIVE
     Dosage: 125 MG (1.4 MG/KG), QD
     Route: 065

REACTIONS (5)
  - Alanine aminotransferase increased [Unknown]
  - Leukopenia [Unknown]
  - Bone marrow failure [Unknown]
  - Anaemia [Recovering/Resolving]
  - Off label use [Unknown]
